FAERS Safety Report 19207532 (Version 1)
Quarter: 2021Q2

REPORT INFORMATION
  Report Type: Spontaneous
  Country: IN (occurrence: IN)
  Receive Date: 20210503
  Receipt Date: 20210503
  Transmission Date: 20210717
  Serious: Yes (Other)
  Sender: FDA-Public Use
  Company Number: IN-LUPIN PHARMACEUTICALS INC.-2021-06045

PATIENT
  Age: 58 Year
  Sex: Male

DRUGS (2)
  1. HYDROXYCHLOROQUINE SULFATE TABLETS [Suspect]
     Active Substance: HYDROXYCHLOROQUINE SULFATE
     Indication: COVID-19 PROPHYLAXIS
     Dosage: 800 MILLIGRAM (LOADING DOSE)
     Route: 048
  2. HYDROXYCHLOROQUINE SULFATE TABLETS [Suspect]
     Active Substance: HYDROXYCHLOROQUINE SULFATE
     Dosage: 400 MG WEEKLY
     Route: 048

REACTIONS (4)
  - Dizziness [Unknown]
  - Extrasystoles [Recovered/Resolved]
  - Off label use [Unknown]
  - Tachycardia [Recovered/Resolved]
